FAERS Safety Report 4884200-2 (Version None)
Quarter: 2006Q1

REPORT INFORMATION
  Report Type: 
  Country: None (occurrence: None)
  Receive Date: 20060118
  Receipt Date: 20051005
  Transmission Date: 20060701
  Serious: Yes (Hospitalization)
  Sender: FDA-Public Use
  Company Number: US-MERCK-0510USA04723

PATIENT
  Age: 64 Year
  Sex: Female
  Weight: 80 kg

DRUGS (11)
  1. VIOXX [Suspect]
     Indication: ARTHRITIS
     Route: 048
     Dates: start: 20000622, end: 20000801
  2. VIOXX [Suspect]
     Route: 048
     Dates: start: 20000622, end: 20000801
  3. GLYBURIDE [Concomitant]
     Route: 065
  4. VERAPAMIL [Concomitant]
     Route: 065
  5. LEVOTHROID [Concomitant]
     Route: 065
  6. MONOPRIL [Concomitant]
     Route: 065
  7. RHINOCORT [Concomitant]
     Route: 065
  8. ZYRTEC [Concomitant]
     Route: 065
  9. AMOXIL [Concomitant]
     Route: 065
  10. PREMARIN [Concomitant]
     Route: 065
  11. MEDROXYPROGESTERONE ACETATE [Concomitant]
     Route: 065

REACTIONS (2)
  - CARDIOVASCULAR DISORDER [None]
  - ISCHAEMIC STROKE [None]
